FAERS Safety Report 9096708 (Version 1)
Quarter: 2013Q1

REPORT INFORMATION
  Report Type: Spontaneous
  Country: SG (occurrence: SG)
  Receive Date: 20130211
  Receipt Date: 20130211
  Transmission Date: 20140127
  Serious: Yes (Other)
  Sender: FDA-Public Use
  Company Number: SG-BAYER-2013-012924

PATIENT
  Age: 49 Year
  Sex: Female

DRUGS (1)
  1. ACARBOSE [Suspect]
     Dosage: UNK

REACTIONS (1)
  - Chest discomfort [Unknown]
